FAERS Safety Report 7909393-1 (Version None)
Quarter: 2011Q4

REPORT INFORMATION
  Report Type: 
  Country: None (occurrence: None)
  Receive Date: 20111111
  Receipt Date: 20111103
  Transmission Date: 20120403
  Serious: Yes (Hospitalization)
  Sender: FDA-Public Use
  Company Number: FI-US-EMD SERONO, INC.-7093690

PATIENT
  Sex: Female

DRUGS (2)
  1. REBIF [Suspect]
     Indication: MULTIPLE SCLEROSIS
     Route: 058
     Dates: start: 20090917, end: 20110816
  2. IBUPROFEN [Concomitant]
     Route: 048

REACTIONS (1)
  - ACUTE PSYCHOSIS [None]
